FAERS Safety Report 4990251-X (Version None)
Quarter: 2006Q2

REPORT INFORMATION
  Report Type: 
  Country: None (occurrence: None)
  Receive Date: 20060503
  Receipt Date: 20060411
  Transmission Date: 20061013
  Serious: Yes (Hospitalization)
  Sender: FDA-Public Use
  Company Number: US-GLAXOSMITHKLINE-A0589496B

PATIENT
  Age: 46 Year
  Sex: Male

DRUGS (10)
  1. LEXIVA [Suspect]
     Indication: HIV INFECTION
     Route: 048
     Dates: start: 20051103, end: 20060410
  2. EPZICOM [Suspect]
     Indication: HIV INFECTION
     Dosage: 1TAB PER DAY
     Route: 048
     Dates: start: 20051103, end: 20060410
  3. NORVIR [Suspect]
     Indication: HIV INFECTION
     Dosage: 200MG PER DAY
     Route: 048
     Dates: start: 20051103, end: 20060410
  4. FLUCONAZOLE [Concomitant]
     Dates: start: 20051012
  5. ZITHROMAX [Concomitant]
     Dates: start: 20051012
  6. HYDROCHLOROTHIAZIDE [Concomitant]
     Dates: start: 20051012
  7. ASPIRIN [Concomitant]
     Dates: start: 20051128
  8. LOPRESSOR [Concomitant]
     Dates: start: 20060116
  9. ZANTAC [Concomitant]
     Dates: start: 20060116
  10. COMPAZINE [Concomitant]
     Dates: start: 20060116

REACTIONS (12)
  - DEHYDRATION [None]
  - DIABETES MELLITUS NON-INSULIN-DEPENDENT [None]
  - DIABETIC KETOACIDOSIS [None]
  - DIZZINESS [None]
  - DYSLIPIDAEMIA [None]
  - LACTIC ACIDOSIS [None]
  - NAUSEA [None]
  - PANCREATITIS [None]
  - POLLAKIURIA [None]
  - THIRST [None]
  - VOMITING [None]
  - WEIGHT DECREASED [None]
